FAERS Safety Report 9436518 (Version 1)
Quarter: 2013Q3

REPORT INFORMATION
  Report Type: Spontaneous
  Country: US (occurrence: US)
  Receive Date: 20130802
  Receipt Date: 20130802
  Transmission Date: 20140515
  Serious: No
  Sender: FDA-Public Use
  Company Number: US-OPTIMER-20130023

PATIENT
  Age: 22 Year
  Sex: Female
  Weight: 52.15 kg

DRUGS (8)
  1. DIFICID [Suspect]
     Indication: CLOSTRIDIAL INFECTION
     Dosage: 200 MG, BID
     Route: 048
     Dates: start: 20130118
  2. PENTASA [Concomitant]
     Indication: CROHN^S DISEASE
     Dosage: 1000 MG, TID
     Route: 048
  3. ENTOCORT [Concomitant]
     Indication: CROHN^S DISEASE
     Dosage: 6 MG, QD
     Route: 048
  4. MERCAPTOPURINE [Concomitant]
     Indication: CROHN^S DISEASE
     Dosage: 50 MG, QD
     Route: 048
  5. VITAMIN D3 [Concomitant]
     Indication: SUPPLEMENTATION THERAPY
     Dosage: UNK, QD
     Route: 048
  6. VITAMIN B12 [Concomitant]
     Indication: SUPPLEMENTATION THERAPY
     Dosage: UNK, QD
     Route: 048
  7. CALCIUM [Concomitant]
     Indication: SUPPLEMENTATION THERAPY
     Dosage: UNK, QD
     Route: 048
  8. BENTYL [Concomitant]
     Indication: CROHN^S DISEASE
     Dosage: 20 MG, PRN
     Route: 048

REACTIONS (4)
  - Mucous stools [Not Recovered/Not Resolved]
  - Abnormal faeces [Not Recovered/Not Resolved]
  - Abdominal pain [Not Recovered/Not Resolved]
  - Abdominal distension [Not Recovered/Not Resolved]
